FAERS Safety Report 5070208-3 (Version None)
Quarter: 2006Q3

REPORT INFORMATION
  Report Type: 
  Country: None (occurrence: None)
  Receive Date: 20060731
  Receipt Date: 20060721
  Transmission Date: 20061208
  Serious: Yes (Hospitalization)
  Sender: FDA-Public Use
  Company Number: 2006P1000303

PATIENT
  Age: 42 Year
  Sex: Male
  Weight: 100 kg

DRUGS (8)
  1. RETEPLASE (RETEPLASE) [Suspect]
     Indication: ACUTE MYOCARDIAL INFARCTION
     Dosage: IV
     Route: 042
     Dates: start: 20060328, end: 20060328
  2. REOPRO [Suspect]
     Indication: ACUTE MYOCARDIAL INFARCTION
     Dosage: IV
     Route: 042
     Dates: start: 20060328, end: 20060328
  3. BISOPROLOL FUMARATE [Concomitant]
  4. ACETYLSALICYLATE [Concomitant]
  5. CALCIUM GLUCONATE [Concomitant]
  6. CLOPIDOGREL [Concomitant]
  7. LISINOPRIL [Concomitant]
  8. SIMVASTATIN [Concomitant]

REACTIONS (4)
  - ATELECTASIS [None]
  - HAEMATOCRIT DECREASED [None]
  - HAEMOGLOBIN DECREASED [None]
  - PNEUMONIA [None]
